FAERS Safety Report 11700945 (Version 3)
Quarter: 2015Q4

REPORT INFORMATION
  Report Type: Spontaneous
  Country: RU (occurrence: RU)
  Receive Date: 20151105
  Receipt Date: 20151125
  Transmission Date: 20160304
  Serious: Yes (Other)
  Sender: FDA-Public Use
  Company Number: RU-JNJFOC-20151023012

PATIENT
  Age: 70 Year
  Sex: Male

DRUGS (8)
  1. DICYNONE [Concomitant]
     Route: 065
     Dates: start: 20150729, end: 20150826
  2. IBRUTINIB [Suspect]
     Active Substance: IBRUTINIB
     Indication: CHRONIC LYMPHOCYTIC LEUKAEMIA
     Route: 048
     Dates: start: 20150729
  3. IBRUTINIB [Suspect]
     Active Substance: IBRUTINIB
     Indication: CHRONIC LYMPHOCYTIC LEUKAEMIA
     Route: 048
     Dates: start: 20150819
  4. VITAMIN C [Concomitant]
     Active Substance: ASCORBIC ACID
     Route: 065
     Dates: start: 20150729, end: 20150826
  5. IBRUTINIB [Suspect]
     Active Substance: IBRUTINIB
     Indication: CHRONIC LYMPHOCYTIC LEUKAEMIA
     Route: 048
     Dates: start: 20150825
  6. CONCOR [Concomitant]
     Active Substance: BISOPROLOL FUMARATE
     Route: 065
     Dates: start: 20150729, end: 20150826
  7. AMOXI-CLAVULANICO [Concomitant]
     Active Substance: AMOXICILLIN\CLAVULANIC ACID
     Route: 065
     Dates: start: 20150805, end: 20150819
  8. CIPROFLOXACINUM [Concomitant]
     Route: 065
     Dates: start: 20150805, end: 20150819

REACTIONS (11)
  - Oropharyngeal pain [Unknown]
  - Mucosal haemorrhage [Recovered/Resolved]
  - Mucosal hyperaemia [Unknown]
  - Thrombocytopenia [Recovering/Resolving]
  - Palpitations [Unknown]
  - Pyrexia [Recovered/Resolved]
  - Sinus rhythm [Unknown]
  - Nasal congestion [Unknown]
  - Diarrhoea [Recovered/Resolved]
  - Oropharyngeal plaque [Recovering/Resolving]
  - Bundle branch block left [Unknown]

NARRATIVE: CASE EVENT DATE: 2015
